FAERS Safety Report 15719086 (Version 2)
Quarter: 2019Q1

REPORT INFORMATION
  Report Type: Report from Study
  Country: US (occurrence: US)
  Receive Date: 20181213
  Receipt Date: 20190121
  Transmission Date: 20190417
  Serious: Yes (Other)
  Sender: FDA-Public Use
  Company Number: US-JNJFOC-20181122153

PATIENT
  Age: 68 Year
  Sex: Male

DRUGS (6)
  1. IMBRUVICA [Suspect]
     Active Substance: IBRUTINIB
     Indication: RENAL CANCER
     Route: 048
     Dates: start: 20181122, end: 20181204
  2. IMBRUVICA [Suspect]
     Active Substance: IBRUTINIB
     Indication: CHRONIC LYMPHOCYTIC LEUKAEMIA
     Route: 048
     Dates: start: 20190103
  3. IMBRUVICA [Suspect]
     Active Substance: IBRUTINIB
     Indication: RENAL CANCER
     Route: 048
     Dates: start: 20190103
  4. IMBRUVICA [Suspect]
     Active Substance: IBRUTINIB
     Indication: CHRONIC LYMPHOCYTIC LEUKAEMIA
     Route: 048
     Dates: start: 20181122, end: 20181204
  5. IMBRUVICA [Suspect]
     Active Substance: IBRUTINIB
     Indication: RENAL CANCER
     Dosage: START PERIOD :18 DAYS
     Route: 048
     Dates: start: 20181026
  6. IMBRUVICA [Suspect]
     Active Substance: IBRUTINIB
     Indication: CHRONIC LYMPHOCYTIC LEUKAEMIA
     Dosage: START PERIOD :18 DAYS
     Route: 048
     Dates: start: 20181026

REACTIONS (8)
  - Renal neoplasm [Not Recovered/Not Resolved]
  - Incorrect dose administered [Unknown]
  - Haematuria [Unknown]
  - Blood count abnormal [Unknown]
  - Urinary retention [Unknown]
  - Product use in unapproved indication [Unknown]
  - Off label use [Unknown]
  - Renal cyst [Not Recovered/Not Resolved]

NARRATIVE: CASE EVENT DATE: 20181026
